FAERS Safety Report 14310765 (Version 1)
Quarter: 2017Q4

REPORT INFORMATION
  Report Type: Spontaneous
  Country: FR (occurrence: FR)
  Receive Date: 20171220
  Receipt Date: 20171220
  Transmission Date: 20180321
  Serious: Yes (Other)
  Sender: FDA-Public Use
  Company Number: FR-MERCK KGAA-2037504

PATIENT
  Age: 71 Year
  Sex: Male

DRUGS (9)
  1. ATAZANAVIR. [Concomitant]
     Active Substance: ATAZANAVIR SULFATE
  2. DOLUTEGRAVIR [Suspect]
     Active Substance: DOLUTEGRAVIR
  3. TENOFOVIR [Concomitant]
     Active Substance: TENOFOVIR
  4. ABACAVIR. [Concomitant]
     Active Substance: ABACAVIR
  5. EMTRICITABINE [Concomitant]
     Active Substance: EMTRICITABINE
  6. RITONAVIR. [Concomitant]
     Active Substance: RITONAVIR
  7. NOVOTHYROX [Suspect]
     Active Substance: LEVOTHYROXINE SODIUM
     Indication: GOITRE
     Dates: start: 201510
  8. LAMIVUDINE. [Concomitant]
     Active Substance: LAMIVUDINE
  9. NOVOTHYROX [Suspect]
     Active Substance: LEVOTHYROXINE SODIUM
     Dates: start: 2004

REACTIONS (2)
  - Drug interaction [None]
  - Hyperthyroidism [Recovered/Resolved]
